FAERS Safety Report 15185242 (Version 4)
Quarter: 2019Q1

REPORT INFORMATION
  Report Type: Report from Study
  Country: CO (occurrence: CO)
  Receive Date: 20180723
  Receipt Date: 20190226
  Transmission Date: 20190417
  Serious: Yes (Disabling, Other)
  Sender: FDA-Public Use
  Company Number: PHHY2018CO067874

PATIENT
  Sex: Female
  Weight: 55 kg

DRUGS (2)
  1. GILENYA [Suspect]
     Active Substance: FINGOLIMOD HYDROCHLORIDE
     Indication: MULTIPLE SCLEROSIS
     Dosage: 0.5 MG, QD
     Route: 048
     Dates: start: 20141111
  2. GILENYA [Suspect]
     Active Substance: FINGOLIMOD HYDROCHLORIDE
     Dosage: 0.5 MG, Q48H
     Route: 048

REACTIONS (17)
  - Pain in extremity [Not Recovered/Not Resolved]
  - Joint swelling [Unknown]
  - Musculoskeletal stiffness [Not Recovered/Not Resolved]
  - Headache [Not Recovered/Not Resolved]
  - Limb discomfort [Unknown]
  - Osteonecrosis [Not Recovered/Not Resolved]
  - Tendon disorder [Recovering/Resolving]
  - Depression [Unknown]
  - Fatigue [Unknown]
  - Underdose [Unknown]
  - Inflammation [Recovered/Resolved]
  - Inappropriate schedule of product administration [Unknown]
  - Muscular weakness [Unknown]
  - Peripheral swelling [Not Recovered/Not Resolved]
  - Gait disturbance [Unknown]
  - Amnesia [Unknown]
  - Affect lability [Recovering/Resolving]

NARRATIVE: CASE EVENT DATE: 2018
